FAERS Safety Report 4770961-X (Version None)
Quarter: 2005Q3

REPORT INFORMATION
  Report Type: 
  Country: None (occurrence: None)
  Receive Date: 20050914
  Receipt Date: 20050829
  Transmission Date: 20060218
  Serious: Yes (Other)
  Sender: FDA-Public Use
  Company Number: EWC050945588

PATIENT
  Age: 59 Year
  Sex: Female
  Weight: 74 kg

DRUGS (7)
  1. FORTEO [Suspect]
     Indication: OSTEOPOROSIS
     Dosage: 20 UG/OMCE DAU
     Dates: start: 20050909
  2. ALPHAZOL [Concomitant]
  3. DAFLON (DIOSMIN) [Concomitant]
  4. CELEBREX [Concomitant]
  5. PROBITOR (GABEXATE MESILATE) [Concomitant]
  6. MESULID (NIMESULIDE) [Concomitant]
  7. DEPON (PARACETAMOL) [Concomitant]

REACTIONS (5)
  - ALANINE AMINOTRANSFERASE INCREASED [None]
  - ASPARTATE AMINOTRANSFERASE INCREASED [None]
  - BLOOD UREA INCREASED [None]
  - BONE PAIN [None]
  - HYPOAESTHESIA [None]
